FAERS Safety Report 16396289 (Version 7)
Quarter: 2021Q2

REPORT INFORMATION
  Report Type: Report from Study
  Country: AT (occurrence: AT)
  Receive Date: 20190605
  Receipt Date: 20210402
  Transmission Date: 20210716
  Serious: Yes (Hospitalization, Other)
  Sender: FDA-Public Use
  Company Number: AT-SEATTLE GENETICS-2019SGN01944

PATIENT

DRUGS (23)
  1. DACARBAZINE. [Suspect]
     Active Substance: DACARBAZINE
     Dosage: 250.78 MILLIGRAM/SQ. METER
     Route: 065
     Dates: start: 20190608
  2. DEXAMETHASONE. [Suspect]
     Active Substance: DEXAMETHASONE
     Dosage: 160 MILLIGRAM/SQ. METER
     Route: 065
     Dates: start: 20190518
  3. DEXAMETHASONE. [Suspect]
     Active Substance: DEXAMETHASONE
     Dosage: 160 MILLIGRAM
     Route: 065
     Dates: start: 20190607
  4. DOXORUBICIN [Suspect]
     Active Substance: DOXORUBICIN
     Dosage: 87 MILLIGRAM/SQ. METER
     Route: 065
     Dates: start: 20190518
  5. DOXORUBICIN [Suspect]
     Active Substance: DOXORUBICIN
     Dosage: 38.67 MILLIGRAM/SQ. METER
     Route: 065
     Dates: start: 20190607
  6. DOXORUBICIN [Suspect]
     Active Substance: DOXORUBICIN
     Dosage: 39.82 MILLIGRAM/SQ. METER
     Route: 065
     Dates: start: 20190702
  7. BRENTUXIMAB VEDOTIN?MPI [Suspect]
     Active Substance: BRENTUXIMAB VEDOTIN
     Dosage: 1.65 MILLIGRAM/KILOGRAM
     Route: 065
     Dates: start: 20190517
  8. DEXAMETHASONE. [Suspect]
     Active Substance: DEXAMETHASONE
     Indication: HODGKIN^S DISEASE
     Dosage: 160 MILLIGRAM/SQ. METER
     Route: 065
     Dates: start: 20190427
  9. ETOPOSIDE. [Suspect]
     Active Substance: ETOPOSIDE
     Dosage: 990 MILLIGRAM/SQ. METER
     Route: 065
     Dates: start: 20190518
  10. BRENTUXIMAB VEDOTIN?MPI [Suspect]
     Active Substance: BRENTUXIMAB VEDOTIN
     Indication: HODGKIN^S DISEASE
     Dosage: 1.65 MILLIGRAM/KILOGRAM
     Route: 065
     Dates: start: 20190426
  11. DOXORUBICIN [Suspect]
     Active Substance: DOXORUBICIN
     Indication: HODGKIN^S DISEASE
     Dosage: 38.82 MILLIGRAM/SQ. METER
     Route: 065
     Dates: start: 20190427
  12. CYCLOPHOSPHAMIDE. [Suspect]
     Active Substance: CYCLOPHOSPHAMIDE
     Dosage: 1231.1 MILLIGRAM/SQ. METER
     Route: 065
     Dates: start: 20190607
  13. DACARBAZINE. [Suspect]
     Active Substance: DACARBAZINE
     Indication: HODGKIN^S DISEASE
     Dosage: 251.76 MILLIGRAM/SQ. METER
     Route: 065
     Dates: start: 20190428
  14. DACARBAZINE. [Suspect]
     Active Substance: DACARBAZINE
     Dosage: 251.76 MILLIGRAM/SQ. METER
     Route: 065
     Dates: start: 20190520
  15. ETOPOSIDE. [Suspect]
     Active Substance: ETOPOSIDE
     Indication: HODGKIN^S DISEASE
     Dosage: 151.05 MILLIGRAM/SQ. METER
     Route: 065
     Dates: start: 20190427
  16. BRENTUXIMAB VEDOTIN?MPI [Suspect]
     Active Substance: BRENTUXIMAB VEDOTIN
     Dosage: 1.64 MILLIGRAM/SQ. METER
     Route: 065
     Dates: start: 20190606
  17. BRENTUXIMAB VEDOTIN?MPI [Suspect]
     Active Substance: BRENTUXIMAB VEDOTIN
     Dosage: 1.61 MILLIGRAM/SQ. METER
     Route: 065
     Dates: start: 20190701
  18. ETOPOSIDE. [Suspect]
     Active Substance: ETOPOSIDE
     Dosage: 150.47 MILLIGRAM/SQ. METER
     Route: 065
     Dates: start: 20190607
  19. CYCLOPHOSPHAMIDE. [Suspect]
     Active Substance: CYCLOPHOSPHAMIDE
     Dosage: 1235.9 MILLIGRAM/SQ. METER
     Route: 065
     Dates: start: 20190518
  20. CYCLOPHOSPHAMIDE. [Suspect]
     Active Substance: CYCLOPHOSPHAMIDE
     Indication: HODGKIN^S DISEASE
     Dosage: 1235.9 MILLIGRAM/SQ. METER
     Route: 065
     Dates: start: 20190427
  21. CYCLOPHOSPHAMIDE. [Suspect]
     Active Substance: CYCLOPHOSPHAMIDE
     Dosage: 1267 MILLIGRAM/SQ. METER
     Route: 065
     Dates: start: 20190702
  22. DACARBAZINE. [Suspect]
     Active Substance: DACARBAZINE
     Dosage: 249 MILLIGRAM/SQ. METER
     Route: 065
     Dates: start: 20190703
  23. ETOPOSIDE. [Suspect]
     Active Substance: ETOPOSIDE
     Dosage: 149 MILLIGRAM/SQ. METER
     Route: 065
     Dates: start: 20190702

REACTIONS (6)
  - Leukopenia [Not Recovered/Not Resolved]
  - Bone marrow failure [Recovered/Resolved]
  - Neutropenic sepsis [Recovered/Resolved]
  - Dizziness [Recovered/Resolved]
  - Hypotension [Not Recovered/Not Resolved]
  - Febrile neutropenia [Recovered/Resolved]

NARRATIVE: CASE EVENT DATE: 20190504
